FAERS Safety Report 9186681 (Version 1)
Quarter: 2013Q1

REPORT INFORMATION
  Report Type: Spontaneous
  Country: US (occurrence: US)
  Receive Date: 20130325
  Receipt Date: 20130325
  Transmission Date: 20140127
  Serious: Yes (Hospitalization)
  Sender: FDA-Public Use
  Company Number: US-B.I. PHARMACEUTICALS,INC./RIDGEFIELD-2013-BI-07506BP

PATIENT
  Sex: Male
  Weight: 92 kg

DRUGS (5)
  1. SPIRIVA [Suspect]
     Indication: CHRONIC OBSTRUCTIVE PULMONARY DISEASE
     Dosage: 18 MCG
     Route: 055
  2. COREG [Concomitant]
     Indication: HYPERTENSION
     Dosage: 12.5 MG
     Route: 048
  3. HYDROCHOLOROTHIAZIDE [Concomitant]
     Indication: HYPERTENSION
     Dosage: 12.5 MG
     Route: 048
  4. ALBUTEROL [Concomitant]
     Route: 055
  5. IPRATROPIUM [Concomitant]
     Route: 055

REACTIONS (3)
  - Pneumothorax spontaneous [Recovered/Resolved]
  - Painful respiration [Not Recovered/Not Resolved]
  - Bullous lung disease [Recovered/Resolved]
